FAERS Safety Report 9471451 (Version 2)
Quarter: 2013Q3

REPORT INFORMATION
  Report Type: Spontaneous
  Country: GB (occurrence: GB)
  Receive Date: 20130822
  Receipt Date: 20130822
  Transmission Date: 20140515
  Serious: Yes (Other)
  Sender: FDA-Public Use
  Company Number: PHFR2013GB004091

PATIENT
  Age: 43 Year
  Sex: Male

DRUGS (10)
  1. CLOZARIL [Suspect]
     Indication: SCHIZOPHRENIA
     Route: 048
     Dates: start: 20130626
  2. CLOZARIL [Suspect]
     Dosage: 200 MG, QD (MAX)
     Route: 048
     Dates: start: 20130627, end: 20130711
  3. EPILIM CHRONO [Concomitant]
     Dosage: 1500 MG, DAILY
     Route: 048
  4. MIRTAZAPINE [Concomitant]
     Dosage: 42 MG, DAILY
     Route: 048
  5. SIMVASTATIN [Concomitant]
     Dosage: 40 MG, DAILY
     Route: 048
  6. OLANZAPINE [Concomitant]
     Dosage: 5 MG, DAILY
     Route: 048
  7. ARIPIPRAZOLE [Concomitant]
     Dosage: 10 MG, DAILY
     Route: 048
  8. LISINOPRIL [Concomitant]
     Dosage: 20 MG, QD
     Route: 048
  9. FOLIC ACID [Concomitant]
     Dosage: 2.5 MG, QD
     Route: 048
  10. VITAMIN B 12 [Concomitant]
     Dosage: 400 UG, QD
     Route: 048

REACTIONS (5)
  - Electrocardiogram T wave abnormal [Unknown]
  - Electrocardiogram ST segment abnormal [Unknown]
  - Sinus tachycardia [Unknown]
  - Device dislocation [Unknown]
  - C-reactive protein increased [Unknown]
